FAERS Safety Report 7541973-8 (Version None)
Quarter: 2011Q2

REPORT INFORMATION
  Report Type: 
  Country: None (occurrence: None)
  Receive Date: 20110613
  Receipt Date: 20110601
  Transmission Date: 20111010
  Serious: Yes (Hospitalization)
  Sender: FDA-Public Use
  Company Number: NL-TEVA-285131ISR

PATIENT
  Sex: Male
  Weight: 85 kg

DRUGS (1)
  1. DOXYCYCLINE [Suspect]
     Dosage: 100 MILLIGRAM;
     Dates: start: 20110502, end: 20110505

REACTIONS (3)
  - VOMITING [None]
  - DIPLOPIA [None]
  - NAUSEA [None]
